FAERS Safety Report 13617482 (Version 1)
Quarter: 2017Q2

REPORT INFORMATION
  Report Type: Spontaneous
  Country: US (occurrence: US)
  Receive Date: 20170606
  Receipt Date: 20170606
  Transmission Date: 20170830
  Serious: No
  Sender: FDA-Public Use
  Company Number: US-SA-2016SA229735

PATIENT
  Age: 56 Year
  Sex: Male

DRUGS (2)
  1. SOLOSTAR [Concomitant]
     Active Substance: DEVICE
  2. LANTUS SOLOSTAR [Suspect]
     Active Substance: INSULIN GLARGINE
     Indication: TYPE 2 DIABETES MELLITUS
     Dosage: DOSE: 28-38 UNITS
     Route: 065

REACTIONS (5)
  - Product use issue [Unknown]
  - Irritability [Unknown]
  - Pollakiuria [Unknown]
  - Blood glucose abnormal [Unknown]
  - Blood glucose increased [Unknown]
